FAERS Safety Report 20781412 (Version 2)
Quarter: 2022Q3

REPORT INFORMATION
  Report Type: Spontaneous
  Country: US (occurrence: US)
  Receive Date: 20220504
  Receipt Date: 20220704
  Transmission Date: 20221026
  Serious: No
  Sender: FDA-Public Use
  Company Number: US-NOVARTISTESTPH-NVSC2022US101850

PATIENT
  Sex: Female

DRUGS (1)
  1. BETAXOLOL HYDROCHLORIDE [Suspect]
     Active Substance: BETAXOLOL HYDROCHLORIDE
     Indication: Product used for unknown indication
     Dosage: 15 ML
     Route: 065

REACTIONS (3)
  - Product dispensing error [Unknown]
  - Accidental exposure to product [Unknown]
  - Incorrect drug administration rate [Unknown]
